FAERS Safety Report 6207577-4 (Version None)
Quarter: 2009Q2

REPORT INFORMATION
  Report Type: 
  Country: None (occurrence: None)
  Receive Date: 20090528
  Receipt Date: 20090518
  Transmission Date: 20091009
  Serious: Yes (Other)
  Sender: FDA-Public Use
  Company Number: GR-AMGEN-US348220

PATIENT
  Age: 50 Year
  Sex: Female

DRUGS (1)
  1. ENBREL [Suspect]
     Indication: PSORIATIC ARTHROPATHY
     Route: 058
     Dates: start: 20090201

REACTIONS (5)
  - BALANCE DISORDER [None]
  - DYSAESTHESIA [None]
  - HYPOAESTHESIA [None]
  - MYOPATHY [None]
  - NYSTAGMUS [None]
